FAERS Safety Report 18849065 (Version 4)
Quarter: 2021Q1

REPORT INFORMATION
  Report Type: Report from Study
  Country: US (occurrence: US)
  Receive Date: 20210204
  Receipt Date: 20210223
  Transmission Date: 20210419
  Serious: Yes (Death, Hospitalization)
  Sender: FDA-Public Use
  Company Number: US-JNJFOC-20201248666

PATIENT
  Age: 64 Year
  Sex: Female
  Weight: 59.1 kg

DRUGS (5)
  1. EPOPROSTENOL SODIUM. [Suspect]
     Active Substance: EPOPROSTENOL SODIUM
     Route: 042
  2. MACITENTAN [Suspect]
     Active Substance: MACITENTAN
     Indication: PULMONARY ARTERIAL HYPERTENSION
     Route: 048
  3. TADALAFIL. [Concomitant]
     Active Substance: TADALAFIL
  4. AMLODIPINE [Concomitant]
     Active Substance: AMLODIPINE BESYLATE
  5. EPOPROSTENOL SODIUM. [Suspect]
     Active Substance: EPOPROSTENOL SODIUM
     Indication: PULMONARY ARTERIAL HYPERTENSION
     Route: 042

REACTIONS (12)
  - Vascular device infection [Unknown]
  - Underdose [Unknown]
  - Catheter management [Recovered/Resolved]
  - Death [Fatal]
  - Heart rate irregular [Unknown]
  - Tachycardia [Unknown]
  - Device leakage [Recovered/Resolved]
  - Feeling abnormal [Unknown]
  - Hypotension [Unknown]
  - Blood sodium decreased [Unknown]
  - Device occlusion [Unknown]
  - Ascites [Unknown]

NARRATIVE: CASE EVENT DATE: 20201222
